FAERS Safety Report 15384180 (Version 1)
Quarter: 2018Q3

REPORT INFORMATION
  Report Type: Report from Study
  Country: PH (occurrence: PH)
  Receive Date: 20180914
  Receipt Date: 20180914
  Transmission Date: 20181010
  Serious: Yes (Death)
  Sender: FDA-Public Use
  Company Number: PH-ROCHE-2168385

PATIENT
  Age: 44 Year
  Sex: Male
  Weight: 48 kg

DRUGS (1)
  1. ATEZOLIZUMAB. [Suspect]
     Active Substance: ATEZOLIZUMAB
     Indication: NON-SMALL CELL LUNG CANCER METASTATIC
     Route: 042
     Dates: start: 20180711, end: 20180801

REACTIONS (4)
  - Malaise [Unknown]
  - Dyspnoea [Unknown]
  - Pneumonitis [Unknown]
  - Condition aggravated [Fatal]

NARRATIVE: CASE EVENT DATE: 20180819
